FAERS Safety Report 6835035-2 (Version None)
Quarter: 2010Q3

REPORT INFORMATION
  Report Type: 
  Country: None (occurrence: None)
  Receive Date: 20100713
  Receipt Date: 20100602
  Transmission Date: 20110219
  Serious: No
  Sender: FDA-Public Use
  Company Number: US-BIOGENIDEC-2010BI018020

PATIENT
  Age: 38 Year
  Sex: Male

DRUGS (1)
  1. TYSABRI [Suspect]
     Indication: MULTIPLE SCLEROSIS
     Route: 042
     Dates: start: 20100520

REACTIONS (9)
  - ARTHRALGIA [None]
  - CHEST PAIN [None]
  - CHILLS [None]
  - CONTUSION [None]
  - COUGH [None]
  - DYSPNOEA [None]
  - EXCORIATION [None]
  - FALL [None]
  - NASOPHARYNGITIS [None]
